FAERS Safety Report 4835448-4 (Version None)
Quarter: 2005Q4

REPORT INFORMATION
  Report Type: 
  Country: None (occurrence: None)
  Receive Date: 20051122
  Receipt Date: 20051122
  Transmission Date: 20060501
  Serious: Yes (Other)
  Sender: FDA-Public Use
  Company Number: None

PATIENT
  Sex: Female
  Weight: 50.56 kg

DRUGS (1)
  1. TOPOTECAN [Suspect]
     Indication: NEOPLASM
     Dosage: SEE IMAGE
     Route: 042
     Dates: start: 20051017, end: 20051021

REACTIONS (1)
  - SEPSIS [None]
